FAERS Safety Report 9954010 (Version 4)
Quarter: 2014Q2

REPORT INFORMATION
  Report Type: Report from Study
  Country: JP (occurrence: JP)
  Receive Date: 20140304
  Receipt Date: 20140402
  Transmission Date: 20141212
  Serious: Yes (Death)
  Sender: FDA-Public Use
  Company Number: JP-009507513-1401JPN009816

PATIENT
  Sex: Male
  Weight: 45 kg

DRUGS (11)
  1. CANCIDAS FOR INTRAVENOUS DRIP INFUSION 50MG [Suspect]
     Indication: FEBRILE NEUTROPENIA
     Dosage: 50 MG, QD
     Route: 041
     Dates: start: 20131009, end: 20131021
  2. CANCIDAS FOR INTRAVENOUS DRIP INFUSION 70MG [Suspect]
     Indication: FEBRILE NEUTROPENIA
     Dosage: 70 MG, QD
     Route: 041
     Dates: start: 20131008, end: 20131008
  3. GRAN [Concomitant]
     Indication: FEBRILE NEUTROPENIA
     Dosage: 150 MICROGRAM, QD
     Route: 051
     Dates: start: 20131007, end: 20131010
  4. FINIBAX [Concomitant]
     Indication: PNEUMONIA
     Dosage: 250 MG, BID
     Route: 051
     Dates: start: 20131007, end: 20131017
  5. FINIBAX [Concomitant]
     Dosage: 0.5 G, TID
     Route: 051
     Dates: start: 20131008, end: 20131021
  6. BFLUID [Concomitant]
     Indication: PNEUMONIA
     Dosage: 500 ML, BID
     Route: 051
     Dates: start: 20131008, end: 20131008
  7. SOLYUGEN G [Concomitant]
     Indication: PNEUMONIA
     Dosage: 500 ML, QD
     Route: 051
     Dates: start: 20131007, end: 20131009
  8. ELNEOPA NO. 1 [Concomitant]
     Indication: PNEUMONIA
     Dosage: 1.5 L, QD
     Route: 051
     Dates: start: 20131009, end: 20131010
  9. ELNEOPA NO. 2 [Concomitant]
     Indication: PNEUMONIA
     Dosage: 1.5 L, QD
     Route: 051
     Dates: start: 20131011
  10. GASTER [Concomitant]
     Indication: PROPHYLAXIS
     Dosage: 20 MG, QD
     Route: 051
     Dates: start: 20131007, end: 20131013
  11. OXYFAST [Concomitant]
     Indication: CANCER PAIN
     Dosage: 50 MG, QD
     Route: 051
     Dates: start: 20131007

REACTIONS (2)
  - Rectal cancer [Fatal]
  - Blood alkaline phosphatase increased [Not Recovered/Not Resolved]
